FAERS Safety Report 7644236-5 (Version None)
Quarter: 2011Q3

REPORT INFORMATION
  Report Type: 
  Country: None (occurrence: None)
  Receive Date: 20110729
  Receipt Date: 20110719
  Transmission Date: 20111222
  Serious: Yes (Other)
  Sender: FDA-Public Use
  Company Number: PHHY2011US66062

PATIENT
  Sex: Female

DRUGS (6)
  1. MULTI-VITAMINS [Concomitant]
     Dosage: UNK UKN, UNK
  2. TYLENOL-500 [Concomitant]
     Dosage: UNK UKN, UNK
  3. FLUTICASONE PROPIONATE [Concomitant]
     Dosage: 50 MG, UNK
  4. PROAIR HFA [Concomitant]
     Dosage: UNK UKN, UNK
  5. LORATADINE [Concomitant]
     Dosage: 10 MG, UNK
  6. RECLAST [Suspect]
     Indication: BONE DENSITY DECREASED
     Dosage: UNK UKN, UNK
     Route: 042
     Dates: start: 20110708

REACTIONS (17)
  - CELLULITIS [None]
  - GAIT DISTURBANCE [None]
  - VOMITING [None]
  - LIMB DISCOMFORT [None]
  - COUGH [None]
  - FRACTURE [None]
  - PAIN IN EXTREMITY [None]
  - INFLUENZA LIKE ILLNESS [None]
  - HYPERHIDROSIS [None]
  - ARTHRALGIA [None]
  - INFECTION [None]
  - DYSSTASIA [None]
  - FEELING ABNORMAL [None]
  - DECREASED APPETITE [None]
  - ARTHROPATHY [None]
  - MYALGIA [None]
  - OEDEMA PERIPHERAL [None]
